FAERS Safety Report 13477797 (Version 1)
Quarter: 2017Q2

REPORT INFORMATION
  Report Type: Spontaneous
  Country: US (occurrence: US)
  Receive Date: 20170425
  Receipt Date: 20170425
  Transmission Date: 20170830
  Serious: No
  Sender: FDA-Public Use
  Company Number: None

PATIENT
  Age: 56 Year
  Sex: Male
  Weight: 87.75 kg

DRUGS (10)
  1. VITAMIN D3 [Concomitant]
     Active Substance: CHOLECALCIFEROL
  2. COPAXONE [Concomitant]
     Active Substance: GLATIRAMER ACETATE
  3. FISH OIL [Concomitant]
     Active Substance: FISH OIL
  4. NUVIGIL [Concomitant]
     Active Substance: ARMODAFINIL
  5. RISPERIDONE. [Suspect]
     Active Substance: RISPERIDONE
     Indication: RESTLESS LEGS SYNDROME
     Dosage: ?          QUANTITY:30 TABLET(S);?
     Route: 048
     Dates: start: 20170328, end: 20170419
  6. ROPINIROLE. [Suspect]
     Active Substance: ROPINIROLE
     Dosage: ?          QUANTITY:30 TABLET(S);?
     Dates: start: 20170420, end: 20170425
  7. ATORVASTATIN [Concomitant]
     Active Substance: ATORVASTATIN
  8. MULTI VITAMIN [Concomitant]
     Active Substance: VITAMINS
  9. AMPYRA [Concomitant]
     Active Substance: DALFAMPRIDINE
  10. CLONAZEPAM. [Concomitant]
     Active Substance: CLONAZEPAM

REACTIONS (3)
  - Product name confusion [None]
  - Drug dispensing error [None]
  - Wrong drug administered [None]

NARRATIVE: CASE EVENT DATE: 20170421
